FAERS Safety Report 9996222 (Version 1)
Quarter: 2014Q1

REPORT INFORMATION
  Report Type: Spontaneous
  Country: US (occurrence: US)
  Receive Date: 20140311
  Receipt Date: 20140311
  Transmission Date: 20141002
  Serious: Yes (Hospitalization, Other)
  Sender: FDA-Public Use
  Company Number: US-PFIZER INC-2014070923

PATIENT
  Age: 53 Year
  Sex: Female
  Weight: 60.8 kg

DRUGS (4)
  1. XELJANZ [Suspect]
     Indication: RHEUMATOID ARTHRITIS
     Dosage: 250 MG, 2X/DAY
     Dates: start: 201304, end: 20130625
  2. LAMICTAL [Concomitant]
     Indication: COMPLEX PARTIAL SEIZURES
     Dosage: 150 MG, 2X/DAY
  3. METHOTREXATE [Concomitant]
     Indication: RHEUMATOID ARTHRITIS
     Dosage: 2.5 MG, 2X/DAY
  4. SULLFAZINE [Concomitant]
     Indication: RHEUMATOID ARTHRITIS
     Dosage: UNK

REACTIONS (3)
  - Lyme disease [Recovered/Resolved]
  - Coma [Recovered/Resolved]
  - Drug prescribing error [Unknown]
